FAERS Safety Report 6391583-3 (Version None)
Quarter: 2009Q4

REPORT INFORMATION
  Report Type: 
  Country: None (occurrence: None)
  Receive Date: 20091007
  Receipt Date: 20090924
  Transmission Date: 20100525
  Serious: Yes (Hospitalization, Other)
  Sender: FDA-Public Use
  Company Number: JP-NAPPMUNDI-MAG-2009-0000827

PATIENT
  Sex: Female

DRUGS (4)
  1. THEOPHYLLINE [Suspect]
     Indication: CHRONIC OBSTRUCTIVE PULMONARY DISEASE
     Dosage: 200 MG, DAILY
     Route: 048
     Dates: start: 20090515, end: 20090903
  2. HOKUNALIN [Concomitant]
     Dosage: 2 MG, DAILY
     Route: 062
     Dates: start: 20090515, end: 20090903
  3. MUCODYNE [Concomitant]
     Dosage: 1500 MG, DAILY
     Route: 048
     Dates: start: 20090515, end: 20090903
  4. MUCOSOLVAN                         /00546002/ [Concomitant]
     Dosage: 45 MG, DAILY
     Route: 048
     Dates: start: 20090515, end: 20090903

REACTIONS (2)
  - ALTERED STATE OF CONSCIOUSNESS [None]
  - CONVULSION [None]
